FAERS Safety Report 16806374 (Version 1)
Quarter: 2019Q3

REPORT INFORMATION
  Report Type: Spontaneous
  Country: US (occurrence: US)
  Receive Date: 20190913
  Receipt Date: 20190913
  Transmission Date: 20191005
  Serious: No
  Sender: FDA-Public Use
  Company Number: US-PERRIGO-19US005607

PATIENT
  Age: 84 Year
  Sex: Female
  Weight: 61.68 kg

DRUGS (4)
  1. TRAVATAN [Concomitant]
     Active Substance: TRAVOPROST
     Indication: INTRAOCULAR PRESSURE TEST
     Dosage: UNK
     Route: 065
  2. NICOTINAMIDE                       /08082001/ [Concomitant]
     Indication: PERIPHERAL VASCULAR DISORDER
     Dosage: UNK
     Route: 065
     Dates: start: 201902
  3. MINOXIDIL. [Suspect]
     Active Substance: MINOXIDIL
     Indication: ALOPECIA
     Dosage: 1 ML, BID
     Route: 061
     Dates: start: 20190412, end: 20190429
  4. RESVERATROL [Concomitant]
     Active Substance: DIETARY SUPPLEMENT\RESVERATROL
     Indication: PERIPHERAL VASCULAR DISORDER
     Dosage: 125MG
     Route: 065
     Dates: start: 201902

REACTIONS (4)
  - Application site pruritus [Recovered/Resolved]
  - Hair texture abnormal [Recovered/Resolved]
  - Hair colour changes [Not Recovered/Not Resolved]
  - Dandruff [Recovered/Resolved with Sequelae]

NARRATIVE: CASE EVENT DATE: 20190419
